FAERS Safety Report 17802778 (Version 2)
Quarter: 2022Q3

REPORT INFORMATION
  Report Type: Spontaneous
  Country: CA (occurrence: CA)
  Receive Date: 20200519
  Receipt Date: 20220913
  Transmission Date: 20221026
  Serious: Yes (Other)
  Sender: FDA-Public Use
  Company Number: CA-TEVA-2020-CA-1236801

PATIENT
  Age: 64 Year
  Sex: Female

DRUGS (26)
  1. METHOTREXATE [Suspect]
     Active Substance: METHOTREXATE
     Indication: Rheumatoid arthritis
     Route: 065
  2. METHOTREXATE [Suspect]
     Active Substance: METHOTREXATE
     Route: 058
  3. PREDNISONE [Suspect]
     Active Substance: PREDNISONE
     Indication: Rheumatoid arthritis
     Route: 065
  4. PREDNISOLONE [Suspect]
     Active Substance: PREDNISOLONE
     Indication: Rheumatoid arthritis
     Route: 065
  5. RISEDRONATE SODIUM [Suspect]
     Active Substance: RISEDRONATE SODIUM
     Indication: Rheumatoid arthritis
     Route: 065
  6. ACTEMRA [Suspect]
     Active Substance: TOCILIZUMAB
     Indication: Rheumatoid arthritis
     Route: 065
  7. LEFLUNOMIDE [Suspect]
     Active Substance: LEFLUNOMIDE
     Indication: Rheumatoid arthritis
     Dosage: 20 MILLIGRAM DAILY;
     Route: 048
  8. ARAVA [Suspect]
     Active Substance: LEFLUNOMIDE
     Indication: Product used for unknown indication
     Route: 065
  9. CELEBREX [Suspect]
     Active Substance: CELECOXIB
     Indication: Rheumatoid arthritis
     Route: 065
  10. CIMZIA [Suspect]
     Active Substance: CERTOLIZUMAB PEGOL
     Indication: Rheumatoid arthritis
     Route: 058
  11. CIMZIA [Suspect]
     Active Substance: CERTOLIZUMAB PEGOL
     Route: 058
  12. ENBREL [Suspect]
     Active Substance: ETANERCEPT
     Indication: Rheumatoid arthritis
     Route: 058
  13. HYDROXYCHLOROQUINE [Suspect]
     Active Substance: HYDROXYCHLOROQUINE
     Indication: Product used for unknown indication
     Route: 065
  14. HYDROXYCHLOROQUINE [Suspect]
     Active Substance: HYDROXYCHLOROQUINE
     Route: 065
  15. ORENCIA [Suspect]
     Active Substance: ABATACEPT
     Indication: Product used for unknown indication
     Route: 065
  16. PLAQUENIL [Suspect]
     Active Substance: HYDROXYCHLOROQUINE SULFATE
     Indication: Product used for unknown indication
     Route: 065
  17. SIMPONI [Suspect]
     Active Substance: GOLIMUMAB
     Indication: Rheumatoid arthritis
     Route: 058
  18. SULFASALAZINE [Suspect]
     Active Substance: SULFASALAZINE
     Indication: Rheumatoid arthritis
     Route: 048
  19. CELECOXIB [Suspect]
     Active Substance: CELECOXIB
     Indication: Rheumatoid arthritis
     Route: 065
  20. CYCLOBENZAPRINE [Concomitant]
     Active Substance: CYCLOBENZAPRINE
     Indication: Product used for unknown indication
     Route: 065
  21. DESOXIMETASONE [Concomitant]
     Active Substance: DESOXIMETASONE
     Indication: Product used for unknown indication
     Dosage: 5 MILLIGRAM DAILY;
     Route: 065
  22. DESOXIMETASONE [Concomitant]
     Active Substance: DESOXIMETASONE
     Route: 065
  23. LEFLUNOMIDE [Concomitant]
     Active Substance: LEFLUNOMIDE
     Indication: Product used for unknown indication
     Route: 065
  24. PREDNISONE ACETATE [Concomitant]
     Active Substance: PREDNISONE ACETATE
     Indication: Product used for unknown indication
     Dosage: 5 MILLIGRAM DAILY;
     Route: 065
  25. TYLENOL [Concomitant]
     Active Substance: ACETAMINOPHEN
     Indication: Product used for unknown indication
     Route: 065
  26. ACETAMINOPHEN [Concomitant]
     Active Substance: ACETAMINOPHEN
     Indication: Product used for unknown indication
     Route: 065

REACTIONS (18)
  - Anaphylactic shock [Unknown]
  - Arthralgia [Unknown]
  - Bedridden [Unknown]
  - Condition aggravated [Unknown]
  - Drug ineffective [Unknown]
  - Fibromyalgia [Unknown]
  - Foot fracture [Unknown]
  - General physical health deterioration [Unknown]
  - Hepatitis [Unknown]
  - Loss of personal independence in daily activities [Unknown]
  - Lower limb fracture [Unknown]
  - Mobility decreased [Unknown]
  - Myocardial infarction [Unknown]
  - Off label use [Unknown]
  - Osteoporosis [Unknown]
  - Rheumatoid arthritis [Unknown]
  - Therapeutic product effect incomplete [Unknown]
  - Treatment failure [Unknown]
